FAERS Safety Report 13897816 (Version 2)
Quarter: 2018Q1

REPORT INFORMATION
  Report Type: Spontaneous
  Country: ES (occurrence: ES)
  Receive Date: 20170823
  Receipt Date: 20180125
  Transmission Date: 20180508
  Serious: Yes (Death, Other)
  Sender: FDA-Public Use
  Company Number: ES-INCYTE CORPORATION-2017IN007068

PATIENT

DRUGS (2)
  1. JAKAVI [Suspect]
     Active Substance: RUXOLITINIB
     Indication: MYELOFIBROSIS
     Dosage: 5 MG, BID
     Route: 065
  2. HYDROXYCARBAMIDE [Suspect]
     Active Substance: HYDROXYUREA
     Indication: MYELOFIBROSIS
     Dosage: 15 MG/KG, QD
     Route: 065

REACTIONS (11)
  - Cognitive disorder [Fatal]
  - Meningoencephalitis viral [Fatal]
  - Pyrexia [Fatal]
  - Aphasia [Fatal]
  - Meningitis viral [Fatal]
  - Drug ineffective [Unknown]
  - Nausea [Fatal]
  - JC virus infection [Fatal]
  - Musculoskeletal stiffness [Fatal]
  - Anaemia [Recovering/Resolving]
  - General physical health deterioration [Fatal]
